FAERS Safety Report 8849756 (Version 2)
Quarter: 2015Q2

REPORT INFORMATION
  Report Type: Report from Study
  Country: US (occurrence: US)
  Receive Date: 20121019
  Receipt Date: 20150615
  Transmission Date: 20150821
  Serious: Yes (Death)
  Sender: FDA-Public Use
  Company Number: US-ROCHE-1133577

PATIENT
  Sex: Male

DRUGS (5)
  1. ALTEPLASE [Concomitant]
     Active Substance: ALTEPLASE
     Indication: THROMBOSIS IN DEVICE
     Route: 042
  2. TAXOTERE [Concomitant]
     Active Substance: DOCETAXEL
  3. XELODA [Suspect]
     Active Substance: CAPECITABINE
     Indication: FROSTBITE
     Dosage: FOR 7 DAYS THEN OFF FOR 7 DAYS
     Route: 048
  4. ZOFRAN [Concomitant]
     Active Substance: ONDANSETRON HYDROCHLORIDE
  5. GEMZAR [Concomitant]
     Active Substance: GEMCITABINE HYDROCHLORIDE
     Route: 065

REACTIONS (7)
  - Pain [Unknown]
  - Asthenia [Unknown]
  - Unevaluable event [Unknown]
  - Fatigue [Unknown]
  - Death [Fatal]
  - Constipation [Unknown]
  - Mucosal inflammation [Unknown]
